FAERS Safety Report 25444910 (Version 1)
Quarter: 2025Q2

REPORT INFORMATION
  Report Type: Spontaneous
  Country: US (occurrence: None)
  Receive Date: 20250616
  Receipt Date: 20250616
  Transmission Date: 20250717
  Serious: Yes (Life-Threatening, Hospitalization, Disabling)
  Sender: FDA-CTU
  Company Number: None

PATIENT
  Age: 12 Year
  Sex: Male
  Weight: 31 kg

DRUGS (3)
  1. ASPARLAS [Suspect]
     Active Substance: CALASPARGASE PEGOL-MKNL
     Indication: B-cell type acute leukaemia
     Route: 042
     Dates: start: 20250606, end: 20250606
  2. DIPHENHYDRAMINE [Concomitant]
     Active Substance: DIPHENHYDRAMINE
     Dates: start: 20250606, end: 20250606
  3. FAMOTIDINE [Concomitant]
     Active Substance: FAMOTIDINE
     Dates: start: 20250606, end: 20250606

REACTIONS (9)
  - Pyrexia [None]
  - Fatigue [None]
  - Anisocoria [None]
  - Posturing [None]
  - Intracranial pressure increased [None]
  - Cerebral haemorrhage [None]
  - Vasogenic cerebral oedema [None]
  - Hydrocephalus [None]
  - Thrombocytopenia [None]

NARRATIVE: CASE EVENT DATE: 20250608
